FAERS Safety Report 17434913 (Version 1)
Quarter: 2020Q1

REPORT INFORMATION
  Report Type: Spontaneous
  Country: DE (occurrence: DE)
  Receive Date: 20200219
  Receipt Date: 20200219
  Transmission Date: 20200409
  Serious: Yes (Other)
  Sender: FDA-Public Use
  Company Number: NVSC2020DE040220

PATIENT
  Sex: Female

DRUGS (4)
  1. CAPECITABINE. [Suspect]
     Active Substance: CAPECITABINE
     Indication: BREAST CANCER METASTATIC
     Dosage: UNK (IN COMBINATION WITH PERJETA AND HERCEPTIN)
     Route: 048
  2. HERCEPTIN [Suspect]
     Active Substance: TRASTUZUMAB
     Indication: BREAST CANCER METASTATIC
     Dosage: MONOTHERAPY AND AFTERWARDS IN COMBINATION WITH PERJETA AND DOCETAXEL/WITH PERJETA AND CAPECITABINE
     Route: 065
     Dates: start: 2009
  3. PERJETA [Suspect]
     Active Substance: PERTUZUMAB
     Indication: BREAST CANCER METASTATIC
     Dosage: IN COMBINATION WITH HERCEPTIN AND DOCETAXEL AND AFTERWARDS WITH HERCEPTIN AND CAPECITABINE
     Route: 065
  4. DOCETAXEL. [Suspect]
     Active Substance: DOCETAXEL
     Indication: BREAST CANCER METASTATIC
     Dosage: IN COMBINATION WITH PERJETA AND HERCEPTIN
     Route: 065

REACTIONS (2)
  - Interstitial lung disease [Unknown]
  - Alveolitis [Unknown]
